FAERS Safety Report 7437429-3 (Version None)
Quarter: 2011Q2

REPORT INFORMATION
  Report Type: 
  Country: None (occurrence: None)
  Receive Date: 20110426
  Receipt Date: 20100513
  Transmission Date: 20111010
  Serious: No
  Sender: FDA-Public Use
  Company Number: US-PFIZER INC-2010061059

PATIENT
  Sex: Female
  Weight: 59 kg

DRUGS (3)
  1. ESTRING [Suspect]
     Indication: MENOPAUSAL SYMPTOMS
     Dosage: UNK
     Route: 067
     Dates: end: 20100510
  2. CELEBREX [Concomitant]
  3. CELEBREX [Concomitant]
     Indication: ARTHRALGIA
     Dosage: 200 MG, DAILY
     Route: 048

REACTIONS (1)
  - VAGINAL INFECTION [None]
